FAERS Safety Report 8322410-2 (Version None)
Quarter: 2012Q2

REPORT INFORMATION
  Report Type: 
  Country: None (occurrence: None)
  Receive Date: 20120430
  Receipt Date: 20120420
  Transmission Date: 20120825
  Serious: Yes (Other)
  Sender: FDA-Public Use
  Company Number: GB-TEVA-334141ISR

PATIENT
  Age: 60 Year
  Sex: Male
  Weight: 94.4 kg

DRUGS (9)
  1. SPIRONOLACTONE [Concomitant]
  2. OMEPRAZOLE [Concomitant]
  3. CANDESARTAN CILEXETIL [Concomitant]
  4. BISOPROLOL FUMARATE [Concomitant]
  5. ATORVASTATIN [Concomitant]
  6. BUMETANIDE [Concomitant]
  7. VICTOZA [Suspect]
     Route: 058
     Dates: start: 20111017, end: 20120118
  8. METFORMIN HCL [Concomitant]
  9. WARFARIN SODIUM [Suspect]

REACTIONS (4)
  - INTERNATIONAL NORMALISED RATIO DECREASED [None]
  - PALPITATIONS [None]
  - DYSPNOEA [None]
  - DRUG INTERACTION [None]
